FAERS Safety Report 12402739 (Version 2)
Quarter: 2016Q2

REPORT INFORMATION
  Report Type: Spontaneous
  Country: US (occurrence: US)
  Receive Date: 20160525
  Receipt Date: 20160527
  Transmission Date: 20160815
  Serious: No
  Sender: FDA-Public Use
  Company Number: US-SA-2016SA071599

PATIENT
  Age: 74 Year
  Sex: Female

DRUGS (3)
  1. SOLOSTAR [Concomitant]
     Active Substance: DEVICE
     Indication: TYPE 2 DIABETES MELLITUS
  2. LANTUS SOLOSTAR [Suspect]
     Active Substance: INSULIN GLARGINE
     Indication: TYPE 2 DIABETES MELLITUS
     Dosage: DOSE:22 UNIT(S)
     Route: 065
  3. HUMALOG [Concomitant]
     Active Substance: INSULIN LISPRO
     Dosage: SLIDING SCALE

REACTIONS (6)
  - Blood glucose decreased [Unknown]
  - Blood glucose increased [Unknown]
  - Intentional product misuse [Unknown]
  - Fatigue [Unknown]
  - Insomnia [Unknown]
  - Tremor [Unknown]

NARRATIVE: CASE EVENT DATE: 201603
